FAERS Safety Report 7253694-X (Version None)
Quarter: 2011Q1

REPORT INFORMATION
  Report Type: 
  Country: None (occurrence: None)
  Receive Date: 20110129
  Receipt Date: 20100201
  Transmission Date: 20110831
  Serious: No
  Sender: FDA-Public Use
  Company Number: US-ABBOTT-10P-163-0623364-00

PATIENT
  Sex: Male
  Weight: 106.69 kg

DRUGS (2)
  1. HUMIRA [Suspect]
     Indication: PSORIASIS
  2. HUMIRA [Suspect]
     Indication: PSORIATIC ARTHROPATHY
     Dosage: DAY 8
     Dates: start: 20100121

REACTIONS (9)
  - RASH PAPULAR [None]
  - ESCHAR [None]
  - OEDEMA PERIPHERAL [None]
  - PSORIASIS [None]
  - PRURITUS [None]
  - PAIN IN EXTREMITY [None]
  - PAIN [None]
  - RASH [None]
  - ULCER [None]
